FAERS Safety Report 5262585-5 (Version None)
Quarter: 2007Q1

REPORT INFORMATION
  Report Type: 
  Country: None (occurrence: None)
  Receive Date: 20070312
  Receipt Date: 20070301
  Transmission Date: 20070707
  Serious: Yes (Life-Threatening)
  Sender: FDA-Public Use
  Company Number: GB-JNJFOC-20070300676

PATIENT
  Age: 32 Year
  Sex: Female

DRUGS (1)
  1. DAKTACORT [Suspect]
     Indication: SEBORRHOEIC DERMATITIS
     Route: 061

REACTIONS (1)
  - ANAPHYLACTIC REACTION [None]
